FAERS Safety Report 4442942-7 (Version None)
Quarter: 2004Q3

REPORT INFORMATION
  Report Type: 
  Country: None (occurrence: None)
  Receive Date: 20040907
  Receipt Date: 20040907
  Transmission Date: 20050211
  Serious: Yes (Other)
  Sender: FDA-Public Use
  Company Number: None

PATIENT
  Age: 57 Year
  Sex: Male
  Weight: 111 kg

DRUGS (4)
  1. ULTRAM [Suspect]
     Indication: PAIN
     Dosage: 50 MG Q 6 H
  2. DOCUSATE [Concomitant]
  3. MORPHINE CR [Concomitant]
  4. SIMETHICONE [Concomitant]

REACTIONS (1)
  - TREMOR [None]
